FAERS Safety Report 21857610 (Version 4)
Quarter: 2023Q1

REPORT INFORMATION
  Report Type: Report from Study
  Country: CL (occurrence: CL)
  Receive Date: 20230113
  Receipt Date: 20230131
  Transmission Date: 20230417
  Serious: Yes (Life-Threatening, Hospitalization)
  Sender: FDA-Public Use
  Company Number: CL-002147023-NVSC2022CL297015

PATIENT
  Age: 61 Year
  Sex: Female

DRUGS (18)
  1. TRAMETINIB [Suspect]
     Active Substance: TRAMETINIB
     Indication: Colorectal cancer
     Dosage: 1.5 MG
     Route: 048
     Dates: start: 20220629, end: 20221217
  2. NIVOLUMAB [Suspect]
     Active Substance: NIVOLUMAB
     Indication: Colorectal cancer
     Dosage: 466.2 MG
     Route: 042
     Dates: start: 20220629
  3. NIVOLUMAB [Suspect]
     Active Substance: NIVOLUMAB
     Dosage: 500 MG
     Route: 042
     Dates: start: 20221202
  4. IPILIMUMAB [Suspect]
     Active Substance: IPILIMUMAB
     Indication: Colorectal cancer
     Dosage: 77.7 MG
     Route: 042
     Dates: start: 20220629
  5. IPILIMUMAB [Suspect]
     Active Substance: IPILIMUMAB
     Dosage: 83 MG
     Route: 042
     Dates: start: 20221202
  6. ENALAPRIL [Concomitant]
     Active Substance: ENALAPRIL
     Indication: Product used for unknown indication
     Dosage: 10 MG
     Route: 048
     Dates: start: 2015
  7. AMLODIPINE BESYLATE [Concomitant]
     Active Substance: AMLODIPINE BESYLATE
     Indication: Hypertension
     Dosage: 10 MG
     Route: 048
     Dates: start: 20220829
  8. UREA [Concomitant]
     Active Substance: UREA
     Indication: Rash maculo-papular
     Dosage: UNK
     Route: 061
     Dates: start: 20220727
  9. MAGNESIUM [Concomitant]
     Active Substance: MAGNESIUM
     Indication: Muscle spasms
     Dosage: UNK
     Route: 048
     Dates: start: 20220926
  10. PREDNISONE [Concomitant]
     Active Substance: PREDNISONE
     Indication: Product used for unknown indication
     Dosage: 5 MG
     Route: 048
     Dates: start: 20221201, end: 20230110
  11. ORALGENE XILITOL [Concomitant]
     Indication: Stomatitis
     Dosage: UNK
     Route: 061
     Dates: start: 20221201, end: 20221219
  12. ALPRAZOLAM [Concomitant]
     Active Substance: ALPRAZOLAM
     Indication: Product used for unknown indication
     Dosage: 0.5 MG
     Route: 048
     Dates: start: 202204
  13. OMEPRAZOLE [Concomitant]
     Active Substance: OMEPRAZOLE
     Indication: Product used for unknown indication
     Dosage: 20 MG
     Route: 048
     Dates: start: 2022
  14. FEXOFENADINE [Concomitant]
     Active Substance: FEXOFENADINE HYDROCHLORIDE
     Indication: Rash maculo-papular
     Dosage: 180 MG
     Route: 048
     Dates: start: 20220727, end: 20221219
  15. METRONIDAZOLE [Concomitant]
     Active Substance: METRONIDAZOLE
     Indication: Rash maculo-papular
     Dosage: UNK
     Route: 061
     Dates: start: 20220727, end: 20221219
  16. TRIMETHOPRIM [Concomitant]
     Active Substance: TRIMETHOPRIM
     Indication: Product used for unknown indication
     Dosage: 160 MG
     Route: 048
     Dates: start: 20220826
  17. SULFAMETHOXAZOLE [Concomitant]
     Active Substance: SULFAMETHOXAZOLE
     Indication: Product used for unknown indication
     Dosage: 800 MG
     Route: 048
     Dates: start: 20220826
  18. CALCIUM [Concomitant]
     Active Substance: CALCIUM
     Indication: Product used for unknown indication
     Dosage: 1 G
     Route: 048
     Dates: start: 20220826

REACTIONS (2)
  - Enteritis [Recovered/Resolved]
  - Stomatitis [Recovered/Resolved]

NARRATIVE: CASE EVENT DATE: 20221219
